FAERS Safety Report 16259340 (Version 1)
Quarter: 2019Q2

REPORT INFORMATION
  Report Type: Spontaneous
  Country: US (occurrence: US)
  Receive Date: 20190326
  Receipt Date: 20190326
  Transmission Date: 20190711
  Serious: Yes (Hospitalization)
  Sender: FDA-Public Use
  Company Number: None

PATIENT
  Age: 69 Year
  Sex: Male
  Weight: 73.03 kg

DRUGS (2)
  1. DICLOFENAC [Suspect]
     Active Substance: DICLOFENAC
     Indication: PAIN
     Route: 048
     Dates: start: 20170328, end: 20180802
  2. KETOPROFEN. [Suspect]
     Active Substance: KETOPROFEN
     Indication: PAIN
     Dates: start: 20180724, end: 20180729

REACTIONS (4)
  - Anaemia [None]
  - Post-traumatic stress disorder [None]
  - Discomfort [None]
  - Gastric haemorrhage [None]

NARRATIVE: CASE EVENT DATE: 20180729
